FAERS Safety Report 10028578 (Version 7)
Quarter: 2016Q1

REPORT INFORMATION
  Report Type: Spontaneous
  Country: US (occurrence: US)
  Receive Date: 20140321
  Receipt Date: 20160111
  Transmission Date: 20160525
  Serious: Yes (Hospitalization, Other)
  Sender: FDA-Public Use
  Company Number: US-GLAXOSMITHKLINE-A1058568A

PATIENT
  Age: 60 Year
  Sex: Female
  Weight: 63 kg

DRUGS (8)
  1. FLOLAN [Suspect]
     Active Substance: EPOPROSTENOL SODIUM
     Indication: COR PULMONALE CHRONIC
     Dosage: 28.5 NG/KG/MIN, 30,000 NG/ML, 88 ML/DAY,VIAL STRENGTH 1.5 MG
     Route: 042
     Dates: start: 20010502
  2. FLOLAN [Suspect]
     Active Substance: EPOPROSTENOL SODIUM
     Dosage: 29NG/KG/MIN (CONCENTRATION 30,000 NG/ML, PUMP RATE 89 ML/DAY, VIAL STRENGTH 1.5 MG), CO
     Route: 042
  3. FLOLAN [Suspect]
     Active Substance: EPOPROSTENOL SODIUM
     Dosage: 29 NG/KG/MIN CONTINUOUS
     Route: 042
  4. FLOLAN [Suspect]
     Active Substance: EPOPROSTENOL SODIUM
     Indication: PULMONARY HYPERTENSION
     Dosage: UNK
     Dates: start: 20010503
  5. COUMADIN [Concomitant]
     Active Substance: WARFARIN SODIUM
  6. FLOLAN [Suspect]
     Active Substance: EPOPROSTENOL SODIUM
     Dosage: UNK
     Dates: start: 20010503
  7. FLOLAN [Suspect]
     Active Substance: EPOPROSTENOL SODIUM
     Dosage: 29 DF, UNK
     Dates: start: 20010502
  8. REVATIO [Concomitant]
     Active Substance: SILDENAFIL CITRATE

REACTIONS (9)
  - Catheter site pain [Unknown]
  - Catheter site erythema [Unknown]
  - Catheter site swelling [Unknown]
  - Device related infection [Recovered/Resolved]
  - Staphylococcal infection [Unknown]
  - Catheter site discharge [Unknown]
  - Catheter site infection [Unknown]
  - Central venous catheterisation [Recovered/Resolved]
  - Catheter removal [Recovered/Resolved]

NARRATIVE: CASE EVENT DATE: 20140115
